FAERS Safety Report 8826242 (Version 4)
Quarter: 2012Q4

REPORT INFORMATION
  Report Type: 
  Country: GB (occurrence: GB)
  Receive Date: 20121005
  Receipt Date: 20121127
  Transmission Date: 20130627
  Serious: Yes (Death, Other)
  Sender: FDA-Public Use
  Company Number: PHFR2012GB005211

PATIENT
  Age: 56 Year
  Sex: Male

DRUGS (6)
  1. CLOZARIL [Suspect]
     Indication: SCHIZOPHRENIA
     Route: 048
     Dates: start: 19930826
  2. CLOZARIL [Suspect]
     Dosage: 175 mg, UNK
  3. HYOSCINE HYDROBROMIDE [Concomitant]
     Dosage: 300 ug, UNK
     Route: 048
  4. EZETIMIBE [Concomitant]
     Dosage: 10 mg, UNK
     Route: 048
  5. TIOTROPIUM BROMIDE [Concomitant]
  6. SERETIDE [Concomitant]

REACTIONS (6)
  - Death [Fatal]
  - Lung neoplasm malignant [Unknown]
  - General physical condition abnormal [Unknown]
  - Antipsychotic drug level increased [Unknown]
  - White blood cell count increased [Unknown]
  - Neutrophil count increased [Unknown]
